FAERS Safety Report 5109811-0 (Version None)
Quarter: 2006Q3

REPORT INFORMATION
  Report Type: 
  Country: None (occurrence: None)
  Receive Date: 20060918
  Receipt Date: 20060918
  Transmission Date: 20061208
  Serious: Yes (Other)
  Sender: FDA-Public Use
  Company Number: None

PATIENT
  Sex: Female
  Weight: 67.1324 kg

DRUGS (1)
  1. BUPROPRION SR 150 MG TEVA [Suspect]
     Indication: DEPRESSION
     Dosage: 150 MG   2 X DAILY  PO
     Route: 048
     Dates: start: 20060914, end: 20060914

REACTIONS (7)
  - DIZZINESS [None]
  - DRUG INEFFECTIVE [None]
  - DYSKINESIA [None]
  - HEADACHE [None]
  - IMPAIRED DRIVING ABILITY [None]
  - NAUSEA [None]
  - VISION BLURRED [None]
